FAERS Safety Report 5978823-7 (Version None)
Quarter: 2008Q4

REPORT INFORMATION
  Report Type: 
  Country: None (occurrence: None)
  Receive Date: 20081204
  Receipt Date: 20081126
  Transmission Date: 20090506
  Serious: Yes (Other)
  Sender: FDA-Public Use
  Company Number: PHEH2008US06805

PATIENT
  Sex: Female

DRUGS (6)
  1. DIOVAN [Suspect]
     Dosage: 80 MG, QD
     Route: 048
     Dates: start: 20050101
  2. LOPRESSOR [Concomitant]
     Indication: HYPERTENSION
     Dosage: 25 MG, QD
  3. IMDUR [Concomitant]
     Dosage: 30 MG, QD
     Route: 048
  4. CRESTOR [Concomitant]
     Indication: BLOOD CHOLESTEROL
     Dosage: 30 MG, QD
     Route: 048
  5. ASPIRIN [Concomitant]
  6. CALCIUM [Concomitant]

REACTIONS (5)
  - ARTHRITIS [None]
  - CHONDROMALACIA [None]
  - NERVE COMPRESSION [None]
  - TENDON RUPTURE [None]
  - TRIGGER FINGER [None]
